FAERS Safety Report 8947089 (Version 1)
Quarter: 2012Q4

REPORT INFORMATION
  Report Type: 
  Country: US (occurrence: US)
  Receive Date: 20121205
  Receipt Date: 20121205
  Transmission Date: 20130627
  Serious: No
  Sender: FDA-Public Use
  Company Number: US-PFIZER INC-2012304991

PATIENT
  Age: 47 Year
  Sex: Female
  Weight: 63.49 kg

DRUGS (3)
  1. LYRICA [Suspect]
     Indication: CARPAL TUNNEL SYNDROME
     Dosage: UNK
  2. LYRICA [Suspect]
     Indication: NECK DISCOMFORT
  3. LYRICA [Suspect]
     Indication: BACK DISORDER

REACTIONS (2)
  - Bronchitis [Recovered/Resolved]
  - Hypoaesthesia [Unknown]
